FAERS Safety Report 5898919-8 (Version None)
Quarter: 2008Q3

REPORT INFORMATION
  Report Type: 
  Country: None (occurrence: None)
  Receive Date: 20080925
  Receipt Date: 20080916
  Transmission Date: 20090109
  Serious: No
  Sender: FDA-Public Use
  Company Number: FR-SANOFI-SYNTHELABO-A01200713984

PATIENT
  Sex: Female

DRUGS (9)
  1. ANASTROZOLE [Concomitant]
     Indication: BREAST CANCER
     Dosage: UNK
  2. PAROXETINE HCL [Concomitant]
     Dosage: UNK
  3. ALVERINE CITRATE/SIMETHICONE [Concomitant]
     Dosage: UNK
  4. PRATROPIUM BROMIDE [Concomitant]
     Dosage: UNK
  5. ZOLPIDEM [Concomitant]
     Dosage: UNK
  6. TRIMETAZIDINE HYDROCHLORIDE [Concomitant]
     Dosage: UNK
  7. ALVERINE CITRATE [Concomitant]
     Dosage: UNK
  8. DIOSMIN [Concomitant]
     Dosage: UNK
  9. ELIGARD [Suspect]
     Indication: BREAST CANCER
     Route: 058
     Dates: start: 20061201, end: 20070915

REACTIONS (8)
  - ARTHRALGIA [None]
  - DIZZINESS [None]
  - FATIGUE [None]
  - GAIT DISTURBANCE [None]
  - HEADACHE [None]
  - HOT FLUSH [None]
  - HYPERHIDROSIS [None]
  - VISUAL IMPAIRMENT [None]
